FAERS Safety Report 12942105 (Version 1)
Quarter: 2016Q4

REPORT INFORMATION
  Report Type: Report from Study
  Country: CA (occurrence: CA)
  Receive Date: 20161114
  Receipt Date: 20161114
  Transmission Date: 20170207
  Serious: Yes (Hospitalization)
  Sender: FDA-Public Use
  Company Number: CA-ASTRAZENECA-2016SF17175

PATIENT
  Age: 68 Year
  Sex: Female

DRUGS (13)
  1. DAPAGLIFLOZIN [Suspect]
     Active Substance: DAPAGLIFLOZIN
     Indication: TYPE 2 DIABETES MELLITUS
     Route: 048
     Dates: start: 20160205
  2. LENOLTEC [Concomitant]
     Indication: CONSTIPATION
     Route: 048
     Dates: start: 20140310
  3. NOVORAPID [Concomitant]
     Active Substance: INSULIN ASPART
     Route: 058
     Dates: start: 20160702
  4. TYLENOL [Concomitant]
     Active Substance: ACETAMINOPHEN
     Indication: HEADACHE
     Route: 048
  5. METFORMIN [Concomitant]
     Active Substance: METFORMIN HYDROCHLORIDE
     Route: 048
     Dates: start: 20151102
  6. ASA [Concomitant]
     Active Substance: ASPIRIN
     Indication: HYPERLIPIDAEMIA
     Route: 048
  7. METAMUCIL [Concomitant]
     Active Substance: PLANTAGO SEED
     Indication: CONSTIPATION
     Route: 048
  8. DAPAGLIFLOZIN [Suspect]
     Active Substance: DAPAGLIFLOZIN
     Indication: TYPE 2 DIABETES MELLITUS
     Route: 048
     Dates: start: 20140121, end: 20160112
  9. BETADERM [Concomitant]
     Active Substance: BETAMETHASONE VALERATE
     Indication: DANDRUFF
     Route: 048
  10. LYRICA [Concomitant]
     Active Substance: PREGABALIN
     Indication: CONSTIPATION
     Route: 048
     Dates: start: 20140125
  11. VITAMIN B12 [Concomitant]
     Active Substance: CYANOCOBALAMIN
     Indication: CONSTIPATION
     Route: 048
  12. AVENTYL [Concomitant]
     Indication: PAIN IN EXTREMITY
     Route: 048
     Dates: start: 20150530
  13. LANTUS [Concomitant]
     Active Substance: INSULIN GLARGINE
     Route: 058
     Dates: start: 20160121

REACTIONS (1)
  - Osteoarthritis [Recovered/Resolved]

NARRATIVE: CASE EVENT DATE: 20160902
